FAERS Safety Report 13736472 (Version 1)
Quarter: 2017Q3

REPORT INFORMATION
  Report Type: Spontaneous
  Country: IT (occurrence: IT)
  Receive Date: 20170710
  Receipt Date: 20170710
  Transmission Date: 20171127
  Serious: Yes (Other)
  Sender: FDA-Public Use
  Company Number: IT-PFIZER INC-2017293514

PATIENT
  Age: 69 Year
  Sex: Male

DRUGS (1)
  1. GEMCITABINE HYDROCHLORIDE. [Suspect]
     Active Substance: GEMCITABINE HYDROCHLORIDE
     Indication: NON-SMALL CELL LUNG CANCER STAGE IIIB
     Dosage: 1000 MG/M2, CYCLIC (1, 8, AND 15, REPEATED EVERY 28 DAYS)

REACTIONS (2)
  - Erythema multiforme [Recovered/Resolved]
  - Rash vesicular [Recovered/Resolved]
